FAERS Safety Report 21078693 (Version 1)
Quarter: 2022Q3

REPORT INFORMATION
  Report Type: Spontaneous
  Country: US (occurrence: US)
  Receive Date: 20220713
  Receipt Date: 20220713
  Transmission Date: 20221026
  Serious: No
  Sender: FDA-Public Use
  Company Number: US-SA-SAC20220711000282

PATIENT
  Age: 65 Year
  Sex: Female
  Weight: 87 kg

DRUGS (2)
  1. DUPIXENT [Suspect]
     Active Substance: DUPILUMAB
     Indication: Dermatitis atopic
     Dosage: 300 MG, QOW
     Route: 058
     Dates: start: 202108
  2. ADBRY [Concomitant]
     Active Substance: TRALOKINUMAB-LDRM

REACTIONS (8)
  - Skin weeping [Unknown]
  - Skin fissures [Unknown]
  - Dry eye [Unknown]
  - Rash [Unknown]
  - Sleep disorder [Unknown]
  - Arthritis [Unknown]
  - Dry skin [Unknown]
  - Discharge [Unknown]

NARRATIVE: CASE EVENT DATE: 20220630
